FAERS Safety Report 7331761-X (Version None)
Quarter: 2011Q1

REPORT INFORMATION
  Report Type: 
  Country: None (occurrence: None)
  Receive Date: 20110228
  Receipt Date: 20110228
  Transmission Date: 20110831
  Serious: Yes (Other)
  Sender: FDA-Public Use
  Company Number: None

PATIENT
  Age: 58 Year
  Sex: Female
  Weight: 72.5755 kg

DRUGS (1)
  1. AMANTADINE HCL [Suspect]
     Indication: MULTIPLE SCLEROSIS
     Dosage: 100 MG 2 X DAY ORAL
     Route: 048
     Dates: start: 20110121, end: 20110129

REACTIONS (12)
  - LOGORRHOEA [None]
  - CONFUSIONAL STATE [None]
  - ANXIETY [None]
  - NERVOUSNESS [None]
  - MUSCULOSKELETAL STIFFNESS [None]
  - MYDRIASIS [None]
  - DISTURBANCE IN ATTENTION [None]
  - READING DISORDER [None]
  - SLEEP DISORDER [None]
  - HOT FLUSH [None]
  - DEPRESSED MOOD [None]
  - DYSKINESIA [None]
